FAERS Safety Report 10337478 (Version 2)
Quarter: 2015Q4

REPORT INFORMATION
  Report Type: Spontaneous
  Country: MX (occurrence: MX)
  Receive Date: 20140724
  Receipt Date: 20151218
  Transmission Date: 20160304
  Serious: Yes (Other)
  Sender: FDA-Public Use
  Company Number: MX-ROCHE-1439701

PATIENT
  Age: 65 Year
  Sex: Female
  Weight: 74 kg

DRUGS (5)
  1. XELODA [Suspect]
     Active Substance: CAPECITABINE
     Indication: BREAST CANCER METASTATIC
     Dosage: CYCLE DURING 14 DAYS WITH 7 DAYS TO REST
     Route: 048
     Dates: start: 20140603
  2. XELODA [Suspect]
     Active Substance: CAPECITABINE
     Dosage: AT REDUCED DOSE
     Route: 048
     Dates: start: 20140721
  3. AVASTIN [Suspect]
     Active Substance: BEVACIZUMAB
     Indication: BREAST CANCER METASTATIC
     Dosage: 100 MG/ML
     Route: 042
     Dates: start: 20140603
  4. TRADOL [Suspect]
     Active Substance: TRAMADOL HYDROCHLORIDE
     Indication: PALMAR-PLANTAR ERYTHRODYSAESTHESIA SYNDROME
     Route: 065
     Dates: start: 20140709, end: 20140710
  5. TRADOL [Suspect]
     Active Substance: TRAMADOL HYDROCHLORIDE
     Indication: FINGERPRINT LOSS

REACTIONS (3)
  - Malaise [Recovered/Resolved]
  - Fingerprint loss [Recovering/Resolving]
  - Palmar-plantar erythrodysaesthesia syndrome [Recovered/Resolved]

NARRATIVE: CASE EVENT DATE: 20140709
